FAERS Safety Report 6457582-8 (Version None)
Quarter: 2009Q4

REPORT INFORMATION
  Report Type: 
  Country: None (occurrence: None)
  Receive Date: 20091125
  Receipt Date: 20091120
  Transmission Date: 20100525
  Serious: Yes (Death, Hospitalization, Other)
  Sender: FDA-Public Use
  Company Number: PHEH2009US16576

PATIENT
  Sex: Female
  Weight: 38.095 kg

DRUGS (4)
  1. RECLAST [Suspect]
     Indication: OSTEOPOROSIS
     Dosage: 5 MG IV YEARLY
     Route: 042
     Dates: start: 20070101
  2. RECLAST [Suspect]
     Dosage: UNK
     Route: 042
  3. RECLAST [Suspect]
     Dosage: UNK
     Route: 042
     Dates: start: 20091008
  4. REMICADE [Concomitant]
     Indication: RHEUMATOID ARTHRITIS

REACTIONS (7)
  - ABDOMINAL PAIN [None]
  - BLOOD CREATININE INCREASED [None]
  - NAUSEA [None]
  - PANCREATITIS [None]
  - PULMONARY EMBOLISM [None]
  - RENAL FAILURE [None]
  - URINARY TRACT INFECTION [None]
